FAERS Safety Report 4751019-2 (Version None)
Quarter: 2005Q3

REPORT INFORMATION
  Report Type: 
  Country: None (occurrence: None)
  Receive Date: 20050822
  Receipt Date: 20050809
  Transmission Date: 20060218
  Serious: Yes (Death)
  Sender: FDA-Public Use
  Company Number: 2005027310

PATIENT
  Age: 32 Year
  Sex: Male

DRUGS (5)
  1. GEODON [Suspect]
     Indication: SCHIZOAFFECTIVE DISORDER
     Dosage: 120 MG (60 MG, 2 IN 1 D), ORAL
     Route: 048
     Dates: start: 20041001
  2. METHADONE HCL [Suspect]
     Indication: ILL-DEFINED DISORDER
  3. ZYPREXA [Concomitant]
  4. LITHIUM CARBONATE [Concomitant]
  5. DEPAKOTE [Concomitant]

REACTIONS (3)
  - DRUG TOXICITY [None]
  - SLEEP APNOEA SYNDROME [None]
  - SUDDEN DEATH [None]
